FAERS Safety Report 4518136-3 (Version None)
Quarter: 2004Q4

REPORT INFORMATION
  Report Type: 
  Country: None (occurrence: None)
  Receive Date: 20041130
  Receipt Date: 20041116
  Transmission Date: 20050328
  Serious: Yes (Hospitalization)
  Sender: FDA-Public Use
  Company Number: A01200405059

PATIENT
  Age: 65 Year
  Sex: Female

DRUGS (4)
  1. PLAQUENIL [Suspect]
     Indication: SYSTEMIC LUPUS ERYTHEMATOSUS
     Dosage: 200 MG OD  ORAL
     Route: 048
     Dates: start: 19840101
  2. DICLOFENAC [Concomitant]
     Indication: FIBROMYALGIA
  3. MIDAZOLAM HCL [Concomitant]
  4. BUMETANIDE [Concomitant]

REACTIONS (2)
  - HALLUCINATIONS, MIXED [None]
  - SUICIDE ATTEMPT [None]
